FAERS Safety Report 13650039 (Version 1)
Quarter: 2017Q2

REPORT INFORMATION
  Report Type: Spontaneous
  Country: US (occurrence: US)
  Receive Date: 20170613
  Receipt Date: 20170613
  Transmission Date: 20170830
  Serious: Yes (Other)
  Sender: FDA-Public Use
  Company Number: None

PATIENT
  Age: 39 Year
  Sex: Female
  Weight: 74.91 kg

DRUGS (1)
  1. ZOLPIDEM [Suspect]
     Active Substance: ZOLPIDEM\ZOLPIDEM TARTRATE
     Indication: SLEEP DISORDER
     Dosage: 5MG EVERY OTHER NIGHT PO
     Route: 048
     Dates: start: 20170101, end: 20170201

REACTIONS (4)
  - Abdominal discomfort [None]
  - Muscle spasms [None]
  - Treatment failure [None]
  - Paraesthesia [None]

NARRATIVE: CASE EVENT DATE: 20170117
